FAERS Safety Report 18781305 (Version 1)
Quarter: 2021Q1

REPORT INFORMATION
  Report Type: Spontaneous
  Country: US (occurrence: US)
  Receive Date: 20210124
  Receipt Date: 20210124
  Transmission Date: 20210419
  Serious: Yes (Other)
  Sender: FDA-Public Use
  Company Number: None

PATIENT
  Age: 3 Year
  Sex: Male
  Weight: 14.4 kg

DRUGS (2)
  1. STIMATE [Suspect]
     Active Substance: DESMOPRESSIN ACETATE
     Indication: EYE INJURY
     Dosage: ?          QUANTITY:1 PUFF(S);OTHER ROUTE:1 SPRAY IN NOSTRIL?
     Route: 045
     Dates: start: 20200501, end: 20200501
  2. MULTIVITAMIN [Concomitant]
     Active Substance: VITAMINS

REACTIONS (1)
  - Thirst [None]

NARRATIVE: CASE EVENT DATE: 20200501
